FAERS Safety Report 9342732 (Version 1)
Quarter: 2013Q2

REPORT INFORMATION
  Report Type: Spontaneous
  Country: BE (occurrence: BE)
  Receive Date: 20130611
  Receipt Date: 20130611
  Transmission Date: 20140414
  Serious: Yes (Other)
  Sender: FDA-Public Use
  Company Number: BE-JNJFOC-20130602034

PATIENT
  Age: 66 Year
  Sex: Male
  Weight: 49 kg

DRUGS (7)
  1. REMICADE [Suspect]
     Indication: CROHN^S DISEASE
     Dosage: 1 DOSE/EVERY 2 MONTHS
     Route: 042
     Dates: start: 200709
  2. NEUROBION [Concomitant]
     Indication: VITAMIN SUPPLEMENTATION
     Route: 030
  3. FOLAVIT [Concomitant]
     Indication: VITAMIN SUPPLEMENTATION
     Route: 048
  4. STEOVIT D3 [Concomitant]
     Indication: VITAMIN SUPPLEMENTATION
     Route: 048
  5. SOLU MEDROL [Concomitant]
     Indication: PREMEDICATION
     Route: 042
     Dates: end: 200709
  6. SINTROM [Concomitant]
     Indication: PULMONARY EMBOLISM
     Route: 048
  7. SINTROM [Concomitant]
     Indication: DEEP VEIN THROMBOSIS
     Route: 048

REACTIONS (2)
  - Renal artery stenosis [Unknown]
  - Renal tubular disorder [Unknown]
